FAERS Safety Report 18590833 (Version 1)
Quarter: 2020Q4

REPORT INFORMATION
  Report Type: Report from Study
  Country: AU (occurrence: AU)
  Receive Date: 20201208
  Receipt Date: 20201208
  Transmission Date: 20210114
  Serious: Yes (Hospitalization)
  Sender: FDA-Public Use
  Company Number: NVSC2020AU322411

PATIENT
  Sex: Female

DRUGS (2)
  1. COSENTYX [Suspect]
     Active Substance: SECUKINUMAB
     Indication: PSORIATIC ARTHROPATHY
     Dosage: 300 MG, QMO
     Route: 058
     Dates: start: 20200830
  2. COSENTYX [Suspect]
     Active Substance: SECUKINUMAB
     Dosage: UNK (RESTARTED)
     Route: 058

REACTIONS (3)
  - Myocardial infarction [Unknown]
  - Nephrolithiasis [Unknown]
  - Sepsis [Unknown]

NARRATIVE: CASE EVENT DATE: 2020
